FAERS Safety Report 10870389 (Version 1)
Quarter: 2015Q1

REPORT INFORMATION
  Report Type: Spontaneous
  Country: US (occurrence: US)
  Receive Date: 20150226
  Receipt Date: 20150226
  Transmission Date: 20150721
  Serious: Yes (Hospitalization)
  Sender: FDA-Public Use
  Company Number: US-JNJFOC-20150216901

PATIENT
  Age: 75 Year
  Sex: Female

DRUGS (9)
  1. CRANBERRY EXTRACT [Concomitant]
  2. ZOLPIDEM TARTRATE. [Concomitant]
     Active Substance: ZOLPIDEM TARTRATE
  3. PRESERVISION [Concomitant]
  4. IMBRUVICA [Suspect]
     Active Substance: IBRUTINIB
     Indication: CHRONIC LYMPHOCYTIC LEUKAEMIA
     Route: 048
     Dates: end: 20150205
  5. ZYRTEC [Concomitant]
     Active Substance: CETIRIZINE HYDROCHLORIDE
  6. NASONEX [Concomitant]
     Active Substance: MOMETASONE FUROATE
  7. CITALOPRAM [Concomitant]
     Active Substance: CITALOPRAM HYDROBROMIDE
  8. FISH OIL [Concomitant]
     Active Substance: FISH OIL
  9. TYLENOL 8 HR [Concomitant]
     Active Substance: ACETAMINOPHEN

REACTIONS (3)
  - Subarachnoid haemorrhage [Unknown]
  - Fall [Unknown]
  - Headache [Recovered/Resolved]

NARRATIVE: CASE EVENT DATE: 20150205
